FAERS Safety Report 6286791-6 (Version None)
Quarter: 2009Q3

REPORT INFORMATION
  Report Type: 
  Country: None (occurrence: None)
  Receive Date: 20090727
  Receipt Date: 20090727
  Transmission Date: 20100115
  Serious: Yes (Other)
  Sender: FDA-Public Use
  Company Number: None

PATIENT
  Sex: Female
  Weight: 74.3899 kg

DRUGS (3)
  1. FOSAMAX [Suspect]
     Indication: OSTEOPENIA
     Dosage: 1 TABLET 1 PER WK MOUTH P.O.
     Route: 048
  2. FOSAMAX [Suspect]
     Indication: POSTMENOPAUSE
     Dosage: 1 TABLET 1 PER WK MOUTH P.O.
     Route: 048
  3. BONIVA [Suspect]
     Indication: OSTEOPENIA
     Dosage: 1 TBLET 1 PER MON. MOUTH P.O.
     Route: 048

REACTIONS (3)
  - ABDOMINAL PAIN UPPER [None]
  - ASTHMA [None]
  - METABOLIC DISORDER [None]
